FAERS Safety Report 5856282-2 (Version None)
Quarter: 2008Q3

REPORT INFORMATION
  Report Type: 
  Country: None (occurrence: None)
  Receive Date: 20080825
  Receipt Date: 20080819
  Transmission Date: 20090109
  Serious: Yes (Hospitalization)
  Sender: FDA-Public Use
  Company Number: B0533644A

PATIENT
  Age: 50 Year
  Sex: Female

DRUGS (6)
  1. ZELITREX [Suspect]
     Indication: DRUG USE FOR UNKNOWN INDICATION
     Dosage: 500MG PER DAY
     Route: 048
     Dates: start: 20080701, end: 20080723
  2. DEROXAT [Suspect]
     Indication: DRUG USE FOR UNKNOWN INDICATION
     Route: 048
     Dates: start: 20080419, end: 20080723
  3. BACTRIM DS [Suspect]
     Indication: DRUG USE FOR UNKNOWN INDICATION
     Dosage: 3TAB WEEKLY
     Route: 048
     Dates: start: 20080419, end: 20080723
  4. NOCTAMIDE [Concomitant]
     Dosage: .5UNIT PER DAY
     Route: 048
     Dates: start: 20080419
  5. LEXOMIL [Concomitant]
     Route: 048
     Dates: start: 19950101
  6. LEDERFOLINE [Concomitant]
     Route: 048
     Dates: start: 20080419

REACTIONS (3)
  - AGRANULOCYTOSIS [None]
  - NEUTROPHIL COUNT DECREASED [None]
  - SPINAL MYELOGRAM ABNORMAL [None]
